FAERS Safety Report 4927231-6 (Version None)
Quarter: 2006Q1

REPORT INFORMATION
  Report Type: 
  Country: None (occurrence: None)
  Receive Date: 20060228
  Receipt Date: 20050217
  Transmission Date: 20060701
  Serious: No
  Sender: FDA-Public Use
  Company Number: US-GLAXOSMITHKLINE-A0546070A

PATIENT
  Age: 45 Year
  Sex: Male

DRUGS (3)
  1. IMITREX [Suspect]
     Indication: MIGRAINE
     Route: 065
  2. CALCIUM CHANNEL BLOCKER [Concomitant]
  3. MAGNESIUM [Concomitant]

REACTIONS (1)
  - HYPOAESTHESIA [None]
